FAERS Safety Report 6277207-4 (Version None)
Quarter: 2009Q3

REPORT INFORMATION
  Report Type: 
  Country: None (occurrence: None)
  Receive Date: 20090722
  Receipt Date: 20090211
  Transmission Date: 20100115
  Serious: No
  Sender: FDA-Public Use
  Company Number: US-BRISTOL-MYERS SQUIBB COMPANY-14505598

PATIENT
  Sex: Female

DRUGS (2)
  1. COUMADIN [Suspect]
  2. BACTRIM [Interacting]
     Indication: INFECTION

REACTIONS (3)
  - DRUG INTERACTION [None]
  - INFECTION [None]
  - NASOPHARYNGITIS [None]
